FAERS Safety Report 19806061 (Version 1)
Quarter: 2021Q3

REPORT INFORMATION
  Report Type: Spontaneous
  Country: PT (occurrence: PT)
  Receive Date: 20210909
  Receipt Date: 20210909
  Transmission Date: 20211014
  Serious: Yes (Other)
  Sender: FDA-Public Use
  Company Number: PT-MICRO LABS LIMITED-ML2021-02161

PATIENT
  Age: 73 Year
  Sex: Male

DRUGS (1)
  1. TRANEXAMIC ACID. [Suspect]
     Active Substance: TRANEXAMIC ACID
     Route: 037

REACTIONS (4)
  - Pain [Recovered/Resolved]
  - Haemodynamic instability [Recovered/Resolved]
  - Wrong product administered [Unknown]
  - Myoclonus [Recovered/Resolved]
